FAERS Safety Report 16234394 (Version 4)
Quarter: 2021Q2

REPORT INFORMATION
  Report Type: Spontaneous
  Country: CA (occurrence: CA)
  Receive Date: 20190424
  Receipt Date: 20210510
  Transmission Date: 20210716
  Serious: Yes (Other)
  Sender: FDA-Public Use
  Company Number: CA-BRISTOL-MYERS SQUIBB COMPANY-BMS-2019-037149

PATIENT
  Age: 67 Year
  Sex: Female

DRUGS (16)
  1. ORENCIA [Suspect]
     Active Substance: ABATACEPT
     Indication: PRODUCT USED FOR UNKNOWN INDICATION
     Dosage: UNK
     Route: 065
  2. PANTOPRAZOLE MAGNESIUM [Concomitant]
     Active Substance: PANTOPRAZOLE MAGNESIUM
     Indication: PRODUCT USED FOR UNKNOWN INDICATION
     Dosage: UNK
     Route: 065
  3. DEPO?MEDROL [Concomitant]
     Active Substance: METHYLPREDNISOLONE ACETATE
     Indication: RHEUMATOID ARTHRITIS
     Dosage: 80 MILLIGRAM
     Route: 014
  4. HUMIRA [Suspect]
     Active Substance: ADALIMUMAB
     Indication: PRODUCT USED FOR UNKNOWN INDICATION
     Dosage: UNK
     Route: 058
  5. MOBICOX [Suspect]
     Active Substance: MELOXICAM
     Indication: PRODUCT USED FOR UNKNOWN INDICATION
     Route: 065
  6. HYDROXYCHLOROQUINE [Suspect]
     Active Substance: HYDROXYCHLOROQUINE
     Indication: PRODUCT USED FOR UNKNOWN INDICATION
     Dosage: UNK
     Route: 065
  7. PLAQUENIL [HYDROXYCHLOROQUINE PHOSPHATE] [Concomitant]
     Active Substance: HYDROXYCHLOROQUINE DIPHOSPHATE
     Indication: PRODUCT USED FOR UNKNOWN INDICATION
     Dosage: UNK
     Route: 065
  8. XELJANZ [Concomitant]
     Active Substance: TOFACITINIB CITRATE
     Indication: RHEUMATOID ARTHRITIS
     Dosage: 5.0 MILLIGRAM, BID
     Route: 048
  9. ACTEMRA [Suspect]
     Active Substance: TOCILIZUMAB
     Indication: PRODUCT USED FOR UNKNOWN INDICATION
     Dosage: 160 MILLIGRAM, QWK
     Route: 065
  10. METHOTREXATE. [Suspect]
     Active Substance: METHOTREXATE
     Indication: RHEUMATOID ARTHRITIS
     Dosage: UNK
     Route: 065
  11. PREDNISONE. [Concomitant]
     Active Substance: PREDNISONE
     Indication: PRODUCT USED FOR UNKNOWN INDICATION
     Dosage: UNK
     Route: 065
  12. GOLD [Suspect]
     Active Substance: GOLD
     Indication: PRODUCT USED FOR UNKNOWN INDICATION
     Dosage: UNK
     Route: 065
  13. LEFLUNOMIDE. [Suspect]
     Active Substance: LEFLUNOMIDE
     Indication: PRODUCT USED FOR UNKNOWN INDICATION
     Dosage: UNK
     Route: 065
  14. HYDROXYCHLOROQUINE SULFATE. [Suspect]
     Active Substance: HYDROXYCHLOROQUINE SULFATE
     Indication: PRODUCT USED FOR UNKNOWN INDICATION
     Route: 065
  15. MELOXICAM. [Suspect]
     Active Substance: MELOXICAM
     Indication: PRODUCT USED FOR UNKNOWN INDICATION
     Dosage: UNK
     Route: 065
  16. DICLOFENAC [Concomitant]
     Active Substance: DICLOFENAC
     Indication: PRODUCT USED FOR UNKNOWN INDICATION
     Dosage: UNK
     Route: 065

REACTIONS (33)
  - Bone density decreased [Recovered/Resolved]
  - Pulmonary toxicity [Recovered/Resolved]
  - Rash maculo-papular [Recovered/Resolved]
  - Diarrhoea [Recovered/Resolved]
  - Feeling abnormal [Recovered/Resolved]
  - Peripheral swelling [Recovered/Resolved]
  - Rheumatoid lung [Recovered/Resolved]
  - Muscular weakness [Recovered/Resolved]
  - Musculoskeletal pain [Recovered/Resolved]
  - Arthralgia [Recovered/Resolved]
  - Dry eye [Recovered/Resolved]
  - Fatigue [Recovered/Resolved]
  - Hand deformity [Recovered/Resolved]
  - Mobility decreased [Recovered/Resolved]
  - Pain [Recovered/Resolved]
  - Pain in extremity [Recovered/Resolved]
  - Synovial cyst [Recovered/Resolved]
  - Viral upper respiratory tract infection [Recovered/Resolved]
  - Dizziness [Recovered/Resolved]
  - Drug intolerance [Recovered/Resolved]
  - Musculoskeletal stiffness [Recovered/Resolved]
  - Cataract [Recovered/Resolved]
  - Fibromyalgia [Recovered/Resolved]
  - Rheumatoid arthritis [Recovered/Resolved]
  - Joint swelling [Recovered/Resolved]
  - Malaise [Recovered/Resolved]
  - Myalgia [Recovered/Resolved]
  - Tenosynovitis [Recovered/Resolved]
  - Drug ineffective [Recovered/Resolved]
  - Joint range of motion decreased [Recovered/Resolved]
  - Rash pruritic [Recovered/Resolved]
  - Synovitis [Recovered/Resolved]
  - Treatment failure [Recovered/Resolved]
